FAERS Safety Report 6400083-3 (Version None)
Quarter: 2009Q4

REPORT INFORMATION
  Report Type: 
  Country: None (occurrence: None)
  Receive Date: 20091014
  Receipt Date: 20091005
  Transmission Date: 20100525
  Serious: Yes (Hospitalization)
  Sender: FDA-Public Use
  Company Number: B0591815A

PATIENT
  Sex: Female

DRUGS (2)
  1. ARIXTRA [Suspect]
     Indication: DEEP VEIN THROMBOSIS
     Dosage: 7.5MG PER DAY
     Route: 058
     Dates: start: 20090519, end: 20090524
  2. PREVISCAN [Suspect]
     Indication: DEEP VEIN THROMBOSIS
     Dosage: .75TAB PER DAY
     Route: 048
     Dates: start: 20090514, end: 20090524

REACTIONS (3)
  - HAEMATOMA [None]
  - HAEMOGLOBIN DECREASED [None]
  - RETROPERITONEAL HAEMATOMA [None]
